FAERS Safety Report 7550989-7 (Version None)
Quarter: 2011Q2

REPORT INFORMATION
  Report Type: 
  Country: None (occurrence: None)
  Receive Date: 20110609
  Receipt Date: 20110512
  Transmission Date: 20111010
  Serious: No
  Sender: FDA-Public Use
  Company Number: 0000000000-2-11-000002

PATIENT
  Sex: Female

DRUGS (1)
  1. HUMPHREYS TEETHING RELIEF PELLETS [Suspect]
     Indication: TEETHING
     Dosage: 2 PELLETS ORAL 1 TIME
     Route: 048
     Dates: start: 20110512

REACTIONS (2)
  - CONVULSION [None]
  - TOXICITY TO VARIOUS AGENTS [None]
